FAERS Safety Report 25867688 (Version 1)
Quarter: 2025Q4

REPORT INFORMATION
  Report Type: Spontaneous
  Country: EU (occurrence: EU)
  Receive Date: 20251001
  Receipt Date: 20251001
  Transmission Date: 20260118
  Serious: Yes (Life-Threatening)
  Sender: ACCORD
  Company Number: None

PATIENT
  Age: 65 Year
  Sex: Male
  Weight: 105 kg

DRUGS (1)
  1. METHOTREXATE [Suspect]
     Active Substance: METHOTREXATE
     Indication: Rheumatoid arthritis
     Dosage: STRENGTH:  10 MG, 6 PER WEEK 2,5 MG
     Dates: start: 20191119, end: 20250707

REACTIONS (1)
  - Pneumonia [Recovering/Resolving]
